FAERS Safety Report 6174945-9 (Version None)
Quarter: 2009Q2

REPORT INFORMATION
  Report Type: 
  Country: None (occurrence: None)
  Receive Date: 20090430
  Receipt Date: 20081017
  Transmission Date: 20091009
  Serious: No
  Sender: FDA-Public Use
  Company Number: US-ASTRAZENECA-2008UW23049

PATIENT
  Age: 71 Year
  Sex: Male

DRUGS (4)
  1. NEXIUM [Suspect]
     Indication: EROSIVE OESOPHAGITIS
     Dosage: 40 MG
     Route: 048
     Dates: start: 20080701
  2. LEVOTHYROXINE SODIUM [Concomitant]
  3. HYZAAR [Concomitant]
  4. AMLODIPINE [Concomitant]

REACTIONS (3)
  - GASTROOESOPHAGEAL SPHINCTER INSUFFICIENCY [None]
  - INCREASED UPPER AIRWAY SECRETION [None]
  - OESOPHAGEAL STENOSIS [None]
